FAERS Safety Report 7118220-4 (Version None)
Quarter: 2010Q4

REPORT INFORMATION
  Report Type: 
  Country: None (occurrence: None)
  Receive Date: 20101118
  Receipt Date: 20101118
  Transmission Date: 20110411
  Serious: Yes (Disabling)
  Sender: FDA-Public Use
  Company Number: None

PATIENT
  Sex: Female
  Weight: 8.1647 kg

DRUGS (1)
  1. HYLANDS TEETHING TABLETS HYLANDS INC [Suspect]
     Indication: TEETHING
     Dosage: 2-3 TABLETS 4 TIMES A DAY PO
     Route: 048
     Dates: start: 20100601, end: 20101117

REACTIONS (2)
  - ABDOMINAL DISCOMFORT [None]
  - CONSTIPATION [None]
